FAERS Safety Report 5430663-3 (Version None)
Quarter: 2007Q3

REPORT INFORMATION
  Report Type: 
  Country: None (occurrence: None)
  Receive Date: 20070830
  Receipt Date: 20060815
  Transmission Date: 20080115
  Serious: No
  Sender: FDA-Public Use
  Company Number: US-KINGPHARMUSA00001-K200601058

PATIENT

DRUGS (6)
  1. FLORINEF [Suspect]
     Indication: ADDISON'S DISEASE
     Dosage: .1 MG, BID
     Route: 048
  2. COUMADIN [Concomitant]
  3. AMIODARONE [Concomitant]
  4. FOLVITE [Concomitant]
  5. EYE DROPS [Concomitant]
  6. LIPITOR [Concomitant]

REACTIONS (1)
  - BLOOD PRESSURE SYSTOLIC INCREASED [None]
